FAERS Safety Report 25892553 (Version 1)
Quarter: 2025Q4

REPORT INFORMATION
  Report Type: Spontaneous
  Country: BR (occurrence: BR)
  Receive Date: 20251007
  Receipt Date: 20251007
  Transmission Date: 20260117
  Serious: Yes (Other)
  Sender: NOVO NORDISK
  Company Number: BR-NOVOPROD-1531643

PATIENT
  Age: 51 Year
  Sex: Female
  Weight: 78 kg

DRUGS (12)
  1. WEGOVY [Suspect]
     Active Substance: SEMAGLUTIDE
     Indication: Product used for unknown indication
     Dosage: UNK
     Dates: start: 202409
  2. WEGOVY [Suspect]
     Active Substance: SEMAGLUTIDE
     Dosage: 1 MG
     Dates: end: 202502
  3. WEGOVY [Suspect]
     Active Substance: SEMAGLUTIDE
     Dosage: UNK (DOSE PROGRESSION)
  4. WEGOVY [Suspect]
     Active Substance: SEMAGLUTIDE
     Dosage: 2.4 MG
  5. EZETIMIBE [Concomitant]
     Active Substance: EZETIMIBE
     Dosage: 10 MG
  6. XARELTO [Concomitant]
     Active Substance: RIVAROXABAN
     Dosage: 10 MG, QD (1-0-0)
  7. VALSARTAN [Concomitant]
     Active Substance: VALSARTAN
     Dosage: 160 MG, QD (1-0-0)
  8. ROSUVASTATIN [Concomitant]
     Active Substance: ROSUVASTATIN
     Dosage: 20 MG, QD (0-0-1)
  9. IMENSE [Concomitant]
     Dosage: 100 MG, QD (1-0-0)
  10. ARIPIPRAZOLE [Concomitant]
     Active Substance: ARIPIPRAZOLE
     Dosage: 15 MG, QD (0-0-1)
  11. TRAZODONE [Concomitant]
     Active Substance: TRAZODONE HYDROCHLORIDE
     Dosage: 50 MG, QD (0-0-1)
  12. MELATONIN [Concomitant]
     Active Substance: MELATONIN
     Dosage: 0-0-1

REACTIONS (5)
  - Carotid artery stenosis [Unknown]
  - Diverticulum intestinal [Unknown]
  - Hepatic steatosis [Unknown]
  - Insulin resistance [Unknown]
  - Constipation [Unknown]

NARRATIVE: CASE EVENT DATE: 20250101
